FAERS Safety Report 16399808 (Version 1)
Quarter: 2019Q2

REPORT INFORMATION
  Report Type: Spontaneous
  Country: US (occurrence: US)
  Receive Date: 20190606
  Receipt Date: 20190606
  Transmission Date: 20190711
  Serious: No
  Sender: FDA-Public Use
  Company Number: US-SA-2019SA152390

PATIENT
  Sex: Female
  Weight: 56.69 kg

DRUGS (4)
  1. ASPIRINE 325 MG [Concomitant]
  2. ZYRTEC [Concomitant]
     Active Substance: CETIRIZINE HYDROCHLORIDE
  3. DUPIXENT [Suspect]
     Active Substance: DUPILUMAB
     Indication: DERMATITIS ATOPIC
     Dosage: 300 MG, QOW
     Route: 058
     Dates: start: 20190322
  4. MAGNESIUM CHLORIDE. [Concomitant]
     Active Substance: MAGNESIUM CHLORIDE

REACTIONS (2)
  - Photosensitivity reaction [Unknown]
  - Tanning [Unknown]
